FAERS Safety Report 6118295-5 (Version None)
Quarter: 2009Q1

REPORT INFORMATION
  Report Type: 
  Country: None (occurrence: None)
  Receive Date: 20090314
  Receipt Date: 20090211
  Transmission Date: 20090719
  Serious: Yes (Hospitalization)
  Sender: FDA-Public Use
  Company Number: US-ABBOTT-09P-163-0503382-00

PATIENT
  Sex: Female
  Weight: 105.33 kg

DRUGS (3)
  1. HUMIRA [Suspect]
     Indication: RHEUMATOID ARTHRITIS
     Route: 058
     Dates: start: 20070101, end: 20081101
  2. HUMIRA [Suspect]
     Dates: start: 20090101, end: 20090101
  3. METHOTREXATE [Concomitant]
     Indication: RHEUMATOID ARTHRITIS
     Route: 048
     Dates: end: 20090101

REACTIONS (8)
  - ABSCESS LIMB [None]
  - BREAST MASS [None]
  - CELLULITIS [None]
  - LOCALISED INFECTION [None]
  - RHEUMATOID ARTHRITIS [None]
  - SKIN LACERATION [None]
  - STREPTOCOCCAL INFECTION [None]
  - WOUND INFECTION STAPHYLOCOCCAL [None]
